FAERS Safety Report 8277535-7 (Version None)
Quarter: 2012Q2

REPORT INFORMATION
  Report Type: 
  Country: None (occurrence: None)
  Receive Date: 20120412
  Receipt Date: 20120328
  Transmission Date: 20120825
  Serious: Yes (Other)
  Sender: FDA-Public Use
  Company Number: FR-MERCK-1202FRA00045

PATIENT
  Age: 54 Year
  Sex: Female

DRUGS (8)
  1. VENLAFAXINE HYDROCHLORIDE [Concomitant]
     Route: 048
  2. OFLOXACIN [Suspect]
     Indication: URINARY TRACT INFECTION
     Route: 048
     Dates: start: 20111201
  3. ISENTRESS [Suspect]
     Indication: HIV INFECTION
     Route: 048
     Dates: start: 20110401, end: 20120115
  4. DARUNAVIR [Suspect]
     Indication: HIV INFECTION
     Route: 048
     Dates: start: 20110401, end: 20120115
  5. LITHIUM [Concomitant]
     Route: 065
  6. CYAMEMAZINE [Concomitant]
     Route: 065
  7. ZOPICLONE [Concomitant]
     Route: 065
  8. RITONAVIR [Concomitant]
     Indication: HIV INFECTION
     Route: 065
     Dates: start: 20110401, end: 20120115

REACTIONS (1)
  - CYTOLYTIC HEPATITIS [None]
